FAERS Safety Report 13642219 (Version 1)
Quarter: 2017Q2

REPORT INFORMATION
  Report Type: Spontaneous
  Country: US (occurrence: US)
  Receive Date: 20170612
  Receipt Date: 20170612
  Transmission Date: 20170830
  Serious: Yes (Other)
  Sender: FDA-Public Use
  Company Number: US-AUROBINDO-AUR-APL-2017-35240

PATIENT
  Age: 19 Year
  Sex: Male

DRUGS (3)
  1. PREDNISONE. [Suspect]
     Active Substance: PREDNISONE
     Indication: COLITIS ULCERATIVE
     Dosage: DAILY
     Route: 065
  2. METHOTREXATE. [Suspect]
     Active Substance: METHOTREXATE
     Indication: COLITIS ULCERATIVE
     Dosage: WEEKLY
  3. INFLIXIMAB [Suspect]
     Active Substance: INFLIXIMAB
     Indication: COLITIS ULCERATIVE
     Dosage: EVERY 8 WEEKS
     Route: 065

REACTIONS (7)
  - Papilloedema [Recovering/Resolving]
  - Pupillary disorder [Recovering/Resolving]
  - Retinal vein occlusion [Recovering/Resolving]
  - Macular oedema [Recovering/Resolving]
  - Retinal haemorrhage [Recovering/Resolving]
  - Retinal exudates [Recovering/Resolving]
  - Visual acuity reduced [Recovering/Resolving]
